FAERS Safety Report 7664226-6 (Version None)
Quarter: 2011Q3

REPORT INFORMATION
  Report Type: 
  Country: None (occurrence: None)
  Receive Date: 20110806
  Receipt Date: 20110124
  Transmission Date: 20111222
  Serious: No
  Sender: FDA-Public Use
  Company Number: US-ABBOTT-11P-163-0697435-00

PATIENT
  Sex: Male
  Weight: 56.75 kg

DRUGS (5)
  1. DIOVAN [Concomitant]
     Indication: BLOOD PRESSURE
  2. COUMADIN [Concomitant]
     Indication: PRODUCT USED FOR UNKNOWN INDICATION
     Dosage: 5MG BIW 5 DAY 2.5
  3. ALTACE [Concomitant]
     Indication: BLOOD PRESSURE
  4. TOPROL-XL [Concomitant]
     Indication: BLOOD PRESSURE
  5. NIASPAN [Suspect]
     Indication: BLOOD CHOLESTEROL INCREASED
     Dates: start: 20100701

REACTIONS (1)
  - FLUSHING [None]
